FAERS Safety Report 7280439-X (Version None)
Quarter: 2011Q1

REPORT INFORMATION
  Report Type: 
  Country: None (occurrence: None)
  Receive Date: 20110208
  Receipt Date: 20110131
  Transmission Date: 20110831
  Serious: Yes (Hospitalization, Other)
  Sender: FDA-Public Use
  Company Number: CA-ROCHE-724038

PATIENT
  Sex: Female

DRUGS (9)
  1. DEXAMETHASONE [Concomitant]
     Dates: start: 20101004
  2. FOLIC ACID [Concomitant]
  3. VITAMIN D [Concomitant]
  4. DEXAMETHASONE [Concomitant]
     Dates: start: 20100601
  5. KEPPRA [Concomitant]
  6. RANITIDINE [Concomitant]
  7. AVASTIN [Suspect]
     Indication: GLIOBLASTOMA MULTIFORME
     Dosage: DOSE: 672 MG
     Route: 042
     Dates: start: 20100625, end: 20110113
  8. AVASTIN [Suspect]
     Dosage: DOSE REDUCED
     Route: 042
  9. CRESTOR [Concomitant]

REACTIONS (7)
  - NEOPLASM RECURRENCE [None]
  - ASTHENIA [None]
  - HAEMOGLOBIN DECREASED [None]
  - WHITE BLOOD CELL COUNT DECREASED [None]
  - GASTROINTESTINAL ULCER [None]
  - THROMBOCYTOPENIA [None]
  - ORAL CANDIDIASIS [None]
